FAERS Safety Report 7134692-3 (Version None)
Quarter: 2010Q4

REPORT INFORMATION
  Report Type: 
  Country: None (occurrence: None)
  Receive Date: 20101203
  Receipt Date: 20101118
  Transmission Date: 20110411
  Serious: Yes (Other)
  Sender: FDA-Public Use
  Company Number: US-ROCHE-722258

PATIENT
  Sex: Female
  Weight: 41.7 kg

DRUGS (6)
  1. ACCUTANE [Suspect]
     Indication: ACNE
     Route: 065
     Dates: start: 19950101
  2. ACCUTANE [Suspect]
     Route: 065
     Dates: start: 19980101
  3. MAXALT [Concomitant]
  4. BIRTH CONTROL PILLS [Concomitant]
  5. IBUPROFEN [Concomitant]
     Dosage: OCCASIONALLY
  6. TYLENOL-500 [Concomitant]

REACTIONS (4)
  - CROHN'S DISEASE [None]
  - GASTROINTESTINAL INJURY [None]
  - IRRITABLE BOWEL SYNDROME [None]
  - SMALL INTESTINAL OBSTRUCTION [None]
